FAERS Safety Report 7164229-4 (Version None)
Quarter: 2010Q4

REPORT INFORMATION
  Report Type: 
  Country: None (occurrence: None)
  Receive Date: 20101123
  Receipt Date: 20100806
  Transmission Date: 20110411
  Serious: No
  Sender: FDA-Public Use
  Company Number: 016199

PATIENT
  Sex: Female
  Weight: 117.4816 kg

DRUGS (6)
  1. CIMZIA [Suspect]
     Indication: CROHN'S DISEASE
     Dosage: 400 MG 1X/MONTH SUBCUTANEOUS
     Route: 058
  2. MESALAMINE [Concomitant]
  3. ENTOCORT EC [Concomitant]
  4. REGLAN [Concomitant]
  5. VICODIN [Concomitant]
  6. WELLBUTRIN [Concomitant]

REACTIONS (1)
  - VISUAL IMPAIRMENT [None]
